FAERS Safety Report 25214920 (Version 1)
Quarter: 2025Q2

REPORT INFORMATION
  Report Type: Spontaneous
  Country: US (occurrence: None)
  Receive Date: 20250417
  Receipt Date: 20250417
  Transmission Date: 20250716
  Serious: Yes (Disabling)
  Sender: FDA-CTU
  Company Number: None

PATIENT
  Age: 42 Year
  Sex: Female
  Weight: 54 kg

DRUGS (2)
  1. SKINCEUTICALS GLYCOLIC RENEWAL CLEANSER [Suspect]
     Active Substance: GLYCOLIC ACID
  2. MINOCYCLINE [Concomitant]
     Active Substance: MINOCYCLINE HYDROCHLORIDE

REACTIONS (6)
  - Skin exfoliation [None]
  - Skin wrinkling [None]
  - Skin exfoliation [None]
  - Skin texture abnormal [None]
  - Acne [None]
  - Product complaint [None]

NARRATIVE: CASE EVENT DATE: 20250417
